FAERS Safety Report 5223157-1 (Version None)
Quarter: 2007Q1

REPORT INFORMATION
  Report Type: 
  Country: None (occurrence: None)
  Receive Date: 20070129
  Receipt Date: 20070119
  Transmission Date: 20070707
  Serious: Yes (Other)
  Sender: FDA-Public Use
  Company Number: US-PFIZER INC-2007005920

PATIENT
  Sex: Male
  Weight: 77.1 kg

DRUGS (5)
  1. VIAGRA [Suspect]
     Indication: ERECTILE DYSFUNCTION
  2. KLONOPIN [Concomitant]
  3. WELLBUTRIN [Concomitant]
  4. TEGRETOL [Concomitant]
  5. RISPERDAL [Concomitant]

REACTIONS (6)
  - ARTERIAL OCCLUSIVE DISEASE [None]
  - BLOOD CHOLESTEROL INCREASED [None]
  - DRUG INEFFECTIVE [None]
  - FEELING HOT [None]
  - MYOCARDIAL INFARCTION [None]
  - THROMBOSIS [None]
